FAERS Safety Report 21125508 (Version 1)
Quarter: 2022Q3

REPORT INFORMATION
  Report Type: Spontaneous
  Country: US (occurrence: US)
  Receive Date: 20220725
  Receipt Date: 20220725
  Transmission Date: 20221026
  Serious: No
  Sender: FDA-Public Use
  Company Number: US-MEDEXUS PHARMA, INC.-2022MED00280

PATIENT
  Sex: Female

DRUGS (9)
  1. RASUVO [Suspect]
     Active Substance: METHOTREXATE SODIUM
     Indication: Arthritis
     Dosage: 20 MG (0.4 ML) INJECTED ON INNER UPPER THIGH, EVERY WEEK ON SATURDAYS
     Route: 058
     Dates: start: 202202, end: 2022
  2. RASUVO [Suspect]
     Active Substance: METHOTREXATE SODIUM
     Indication: Swelling
     Dosage: 20 MG (0.4 ML) INJECTED ON INNER UPPER THIGH, EVERY WEEK ON SATURDAYS
     Route: 058
     Dates: start: 2022
  3. DULOXETINE [Concomitant]
     Active Substance: DULOXETINE
     Dosage: 1 TABLET (30 MG), 1X/DAY
  4. DULOXETINE [Concomitant]
     Active Substance: DULOXETINE
     Dosage: 1 TABLET (60 MG), 1X/DAY
  5. BENAZEPRIL [Concomitant]
     Active Substance: BENAZEPRIL HYDROCHLORIDE
     Dosage: 1 TABLET (40 MG), 1X/DAY
  6. CLOPIDOGREL [Concomitant]
     Active Substance: CLOPIDOGREL BISULFATE
     Dosage: 1 TABLET (75 MG), 1X/DAY
  7. FOLIC ACID [Concomitant]
     Active Substance: FOLIC ACID
     Dosage: 1 TABLET (1 MG), 1X/DAY
  8. PREDNISONE [Concomitant]
     Active Substance: PREDNISONE
     Dosage: 3 TABLETS (3 MG), 1X/DAY
  9. VITAMIN D [Concomitant]
     Active Substance: VITAMIN D NOS
     Dosage: ONE CAPSULE (50000 IU), 1X/WEEK

REACTIONS (6)
  - Malaise [Recovered/Resolved]
  - Off label use [Not Recovered/Not Resolved]
  - Product dose omission issue [Not Recovered/Not Resolved]
  - Device mechanical issue [Unknown]
  - Device malfunction [Not Recovered/Not Resolved]
  - Device delivery system issue [Unknown]

NARRATIVE: CASE EVENT DATE: 20220101
